FAERS Safety Report 7427952-X (Version None)
Quarter: 2011Q2

REPORT INFORMATION
  Report Type: 
  Country: None (occurrence: None)
  Receive Date: 20110421
  Receipt Date: 20110325
  Transmission Date: 20111010
  Serious: Yes (Hospitalization, Other)
  Sender: FDA-Public Use
  Company Number: US-BAYER-201038942NA

PATIENT
  Age: 33 Year
  Sex: Female
  Weight: 51.701 kg

DRUGS (8)
  1. OCELLA [Suspect]
     Indication: CONTRACEPTION
     Route: 048
     Dates: start: 20080701, end: 20081201
  2. YASMIN [Suspect]
     Indication: ACNE
  3. OCELLA [Suspect]
     Indication: ACNE
  4. ANXIETY MEDICATION [Concomitant]
     Indication: INJURY
  5. IMITREX [Concomitant]
  6. YASMIN [Suspect]
     Indication: CONTRACEPTION
     Route: 048
     Dates: start: 20070401, end: 20080601
  7. ACETAMINOPHEN [Concomitant]
     Indication: PAIN
     Dosage: 650 MG, UNK
     Dates: start: 20081201
  8. ANXIETY MEDICATION [Concomitant]
     Indication: ANXIETY

REACTIONS (2)
  - DEEP VEIN THROMBOSIS [None]
  - PAIN IN EXTREMITY [None]
